FAERS Safety Report 17288597 (Version 1)
Quarter: 2020Q1

REPORT INFORMATION
  Report Type: Other
  Country: CZ (occurrence: CZ)
  Receive Date: 20200120
  Receipt Date: 20200120
  Transmission Date: 20200409
  Serious: Yes (Other)
  Sender: FDA-Public Use
  Company Number: CZ-ADHERA THERAPEUTICS, INC.-2020ADHERA000613

PATIENT

DRUGS (2)
  1. PRESTANCE NOS [Suspect]
     Active Substance: AMLODIPINE BESYLATE\PERINDOPRIL ARGININE
     Indication: HYPERTENSION
     Dosage: 5 MG, UNK (AS REPORTED)
     Route: 065
     Dates: start: 20191121, end: 20191215
  2. PRESTANCE NOS [Suspect]
     Active Substance: AMLODIPINE BESYLATE\PERINDOPRIL ARGININE
     Dosage: 10 MG, UNK (AS REPORTED)
     Route: 065
     Dates: start: 20191216

REACTIONS (3)
  - Lacrimation increased [Unknown]
  - Headache [Unknown]
  - Diplopia [Not Recovered/Not Resolved]

NARRATIVE: CASE EVENT DATE: 2019
